FAERS Safety Report 5599792-8 (Version None)
Quarter: 2008Q1

REPORT INFORMATION
  Report Type: 
  Country: None (occurrence: None)
  Receive Date: 20080123
  Receipt Date: 20080122
  Transmission Date: 20080703
  Serious: Yes (Hospitalization)
  Sender: FDA-Public Use
  Company Number: FR-BRISTOL-MYERS SQUIBB COMPANY-14049910

PATIENT
  Age: 69 Year
  Sex: Male

DRUGS (5)
  1. ELISOR [Suspect]
     Route: 048
  2. PRAVADUAL [Suspect]
     Route: 048
  3. PLAVIX [Suspect]
     Route: 048
     Dates: end: 20071120
  4. KARDEGIC [Suspect]
     Dosage: KARDEGIC POWDER.
     Route: 048
     Dates: end: 20071120
  5. TRILEPTAL [Concomitant]
     Route: 048

REACTIONS (1)
  - INTRAVENTRICULAR HAEMORRHAGE [None]
